FAERS Safety Report 13858498 (Version 3)
Quarter: 2017Q3

REPORT INFORMATION
  Report Type: Spontaneous
  Country: US (occurrence: US)
  Receive Date: 20170811
  Receipt Date: 20170919
  Transmission Date: 20171127
  Serious: No
  Sender: FDA-Public Use
  Company Number: US-ASTRAZENECA-2017SE80349

PATIENT
  Age: 58 Year
  Sex: Female
  Weight: 59 kg

DRUGS (6)
  1. ATARAX [Concomitant]
     Active Substance: HYDROXYZINE HYDROCHLORIDE
     Indication: ANTIALLERGIC THERAPY
     Dosage: 30MG, AT NIGHT, FOR ABOUT THE PAST 21 YEARS.
     Route: 048
  2. ELMIRON [Concomitant]
     Active Substance: PENTOSAN POLYSULFATE SODIUM
     Indication: CYSTITIS INTERSTITIAL
     Dosage: 100 MG, TWO TIMES A DAY FOR ABOUT 16 YEARS.
     Route: 048
  3. PROAIR HFA [Concomitant]
     Active Substance: ALBUTEROL SULFATE
     Indication: SUPPLEMENTATION THERAPY
     Dosage: 2 PUFFS EVERY 4 TO 6 HOURS AS REQUIRED.
     Route: 055
  4. SYMBICORT [Suspect]
     Active Substance: BUDESONIDE\FORMOTEROL FUMARATE DIHYDRATE
     Indication: ASTHMA
     Dosage: 80/4.5 MCG 2 PUFFS DAILY
     Route: 055
     Dates: start: 2014
  5. SYMBICORT [Suspect]
     Active Substance: BUDESONIDE\FORMOTEROL FUMARATE DIHYDRATE
     Indication: ASTHMA
     Dosage: 80/4.5 MCG 2 PUFFS TWO TIMES A DAY
     Route: 055
  6. URELLE [Concomitant]
     Active Substance: HYOSCYAMINE SULFATE\METHENAMINE\METHYLENE BLUE\PHENYL SALICYLATE\SODIUM PHOSPHATE, MONOBASIC, MONOHYDRATE
     Indication: CYSTITIS INTERSTITIAL
     Route: 048

REACTIONS (9)
  - Respiratory tract infection [Recovered/Resolved]
  - Pneumonia [Recovered/Resolved]
  - Bronchiolitis [Unknown]
  - Off label use [Unknown]
  - Product quality issue [Unknown]
  - Asthma [Recovering/Resolving]
  - Bronchitis [Recovered/Resolved]
  - Influenza [Recovered/Resolved]
  - Product use issue [Unknown]

NARRATIVE: CASE EVENT DATE: 2014
